FAERS Safety Report 16003538 (Version 2)
Quarter: 2019Q1

REPORT INFORMATION
  Report Type: Spontaneous
  Country: US (occurrence: US)
  Receive Date: 20190225
  Receipt Date: 20190225
  Transmission Date: 20190418
  Serious: Yes (Other)
  Sender: FDA-Public Use
  Company Number: US-JNJFOC-20190219506

PATIENT
  Age: 12 Year
  Sex: Male

DRUGS (2)
  1. BAND AID [Suspect]
     Active Substance: DEVICE
     Indication: SKIN ABRASION
     Route: 061
  2. NEOSPORIN [Suspect]
     Active Substance: BACITRACIN ZINC\NEOMYCIN SULFATE\POLYMYXIN B SULFATE
     Indication: SKIN ABRASION
     Route: 061

REACTIONS (1)
  - Hypersensitivity [Recovered/Resolved]
